FAERS Safety Report 9271947 (Version 1)
Quarter: 2013Q2

REPORT INFORMATION
  Report Type: Spontaneous
  Country: US (occurrence: US)
  Receive Date: 20130506
  Receipt Date: 20130506
  Transmission Date: 20140414
  Serious: No
  Sender: FDA-Public Use
  Company Number: US-009507513-1304USA017387

PATIENT
  Age: 25 Year
  Sex: Female
  Weight: 69.39 kg

DRUGS (2)
  1. NUVARING [Suspect]
     Indication: CONTRACEPTION
     Dosage: ONE RING
     Route: 067
     Dates: start: 201110, end: 20130220
  2. FOLIC ACID [Concomitant]

REACTIONS (1)
  - Unintended pregnancy [Unknown]
